FAERS Safety Report 9245390 (Version 1)
Quarter: 2013Q1

REPORT INFORMATION
  Report Type: Spontaneous
  Country: US (occurrence: None)
  Receive Date: 20121130
  Receipt Date: 20121130
  Transmission Date: 20140127
  Serious: Yes (Other)
  Sender: FDA-Public Use
  Company Number: KV201200187

PATIENT
  Sex: Female

DRUGS (1)
  1. MAKENA [Suspect]
     Indication: PREMATURE DELIVERY
     Dosage: 250 MGK, ONCE WEEKLY, INTRAMUSCULAR
     Dates: start: 201205, end: 201208

REACTIONS (2)
  - Premature labour [None]
  - Premature delivery [None]
